FAERS Safety Report 14171488 (Version 1)
Quarter: 2017Q4

REPORT INFORMATION
  Report Type: Other
  Country: IN (occurrence: IN)
  Receive Date: 20171108
  Receipt Date: 20171108
  Transmission Date: 20180321
  Serious: Yes (Other)
  Sender: FDA-Public Use
  Company Number: IN-B. BRAUN MEDICAL INC.-2033558

PATIENT
  Age: 46 Year
  Sex: Female

DRUGS (1)
  1. SODIUM CHLORIDE. [Suspect]
     Active Substance: SODIUM CHLORIDE
     Indication: BODY TEMPERATURE DECREASED
     Route: 042

REACTIONS (4)
  - Drug administration error [Unknown]
  - Blister [Unknown]
  - Erythema [Unknown]
  - Thermal burn [Unknown]
